FAERS Safety Report 5699088-X (Version None)
Quarter: 2008Q2

REPORT INFORMATION
  Report Type: 
  Country: None (occurrence: None)
  Receive Date: 20080404
  Receipt Date: 20070621
  Transmission Date: 20081010
  Serious: Yes (Other)
  Sender: FDA-Public Use
  Company Number: BDI-009757

PATIENT
  Age: 19 Year
  Sex: Female

DRUGS (1)
  1. GASTOGRAFIN, BRACCO [Suspect]
     Indication: ABDOMINAL PAIN LOWER
     Dosage: PO
     Route: 048
     Dates: start: 20070614, end: 20070614

REACTIONS (1)
  - HYPERSENSITIVITY [None]
